FAERS Safety Report 9705459 (Version 1)
Quarter: 2013Q4

REPORT INFORMATION
  Report Type: Spontaneous
  Country: NL (occurrence: NL)
  Receive Date: 20131122
  Receipt Date: 20131122
  Transmission Date: 20140711
  Serious: Yes (Hospitalization)
  Sender: FDA-Public Use
  Company Number: NL-B.I. PHARMACEUTICALS,INC./RIDGEFIELD-2013-BI-38127NL

PATIENT
  Age: 74 Year
  Sex: Male

DRUGS (4)
  1. SPIRIVA [Suspect]
     Indication: CHRONIC OBSTRUCTIVE PULMONARY DISEASE
  2. PERSANTIN [Suspect]
     Indication: TRANSIENT ISCHAEMIC ATTACK
     Dates: start: 2010, end: 2013
  3. VALSARTAN HYDROCHLOORTHIAZIDE [Concomitant]
     Indication: HYPERTENSION
  4. ASPIRIN [Concomitant]
     Indication: TRANSIENT ISCHAEMIC ATTACK
     Dates: start: 2010

REACTIONS (2)
  - Chronic obstructive pulmonary disease [Unknown]
  - Epistaxis [Unknown]
